FAERS Safety Report 8185537-4 (Version None)
Quarter: 2012Q1

REPORT INFORMATION
  Report Type: 
  Country: None (occurrence: None)
  Receive Date: 20120305
  Receipt Date: 20120223
  Transmission Date: 20120608
  Serious: Yes (Other)
  Sender: FDA-Public Use
  Company Number: US-ELI_LILLY_AND_COMPANY-US201202007282

PATIENT
  Sex: Male

DRUGS (2)
  1. HUMATROPE [Suspect]
     Indication: BODY HEIGHT BELOW NORMAL
     Dosage: 3.2 MG, SIX DAYS A WEEK
     Dates: start: 20030301
  2. DDAVP [Concomitant]

REACTIONS (3)
  - BONE LESION [None]
  - LANGERHANS' CELL HISTIOCYTOSIS [None]
  - CENTRAL NERVOUS SYSTEM LESION [None]
